FAERS Safety Report 18747546 (Version 4)
Quarter: 2021Q3

REPORT INFORMATION
  Report Type: Spontaneous
  Country: FR (occurrence: FR)
  Receive Date: 20210115
  Receipt Date: 20210713
  Transmission Date: 20211014
  Serious: Yes (Hospitalization, Disabling, Other)
  Sender: FDA-Public Use
  Company Number: FR-UCBSA-2021000344

PATIENT
  Age: 47 Year
  Sex: Female

DRUGS (57)
  1. CYPROTERONE ACETATE [Suspect]
     Active Substance: CYPROTERONE ACETATE
     Indication: HYPERANDROGENISM
     Dosage: ONE TABLET 7 DAYS A MONTH: THEN Y, TABLET 20 DAYS PER MONTH
     Route: 048
     Dates: start: 20090615
  2. ACETATE DE CYPROTERONE EG [Interacting]
     Active Substance: CYPROTERONE ACETATE
     Indication: HYPERANDROGENISM
     Dosage: ONE TABLET 7 DAYS A MONTH: THEN Y, TABLET 20 DAYS PER MONTH
     Route: 048
     Dates: start: 20140329
  3. CYPROTERON MYLAN [Suspect]
     Active Substance: CYPROTERONE ACETATE
     Dosage: ONE TABLET 7 DAYS A MONTH; THEN 1/2 TABLET 20 DAYS PER MONTH
     Route: 048
     Dates: start: 20091105
  4. CYPROTERON MYLAN [Suspect]
     Active Substance: CYPROTERONE ACETATE
     Dosage: ONE TABLET 7 DAYS A MONTH; THEN 1/2 TABLET 20 DAYS PER MONTH
     Route: 048
     Dates: start: 20100302
  5. CYPROTERONE?TEVA [Interacting]
     Active Substance: CYPROTERONE ACETATE
     Indication: HYPERANDROGENISM
     Dosage: ONE TABLET 7 DAYS A MONTH; THEN 1/2 TABLET 20 DAYS PER MONTH
     Route: 048
     Dates: start: 20101206
  6. CYPROTERONE BIOGARAN [Interacting]
     Active Substance: CYPROTERONE ACETATE
     Dosage: ONE TABLET 7 DAYS A MONTH: THEN Y, TABLET 20 DAYS PER MONTH
     Route: 048
     Dates: start: 20140513
  7. CYPROTERON MYLAN [Suspect]
     Active Substance: CYPROTERONE ACETATE
     Dosage: ONE TABLET 7 DAYS A MONTH; THEN 1/2 TABLET 20 DAYS PER MONTH
     Route: 048
     Dates: start: 20110728
  8. CYPROTERONE ACETATE [Suspect]
     Active Substance: CYPROTERONE ACETATE
     Dosage: ONE TABLET 7 DAYS A MONTH; THEN 1/2 TABLET 20 DAYS PER MONTH
     Route: 048
     Dates: start: 20101019
  9. CYPROTERONE BIOGARAN [Interacting]
     Active Substance: CYPROTERONE ACETATE
     Indication: HYPERANDROGENISM
     Dosage: ONE TABLET 7 DAYS A MONTH: THEN Y, TABLET 20 DAYS PER MONTH
     Route: 048
     Dates: start: 20130503
  10. CYPROTERONE [Suspect]
     Active Substance: CYPROTERONE
     Dosage: ONE TABLET 7 DAYS A MONTH; THEN 1/2 TABLET 20 DAYS PER MONTH
     Route: 048
     Dates: start: 20111125
  11. CYPROTERON MYLAN [Suspect]
     Active Substance: CYPROTERONE ACETATE
     Dosage: ONE TABLET 7 DAYS A MONTH; THEN 1/2 TABLET 20 DAYS PER MONTH
     Route: 048
     Dates: start: 20100914
  12. OMEPRAZOLE. [Suspect]
     Active Substance: OMEPRAZOLE
     Indication: PRODUCT USED FOR UNKNOWN INDICATION
     Dosage: UNK
  13. ANDROCUR [Suspect]
     Active Substance: CYPROTERONE ACETATE
     Dosage: 1 DOSAGE FORM, DAILY
     Route: 048
     Dates: start: 19990723
  14. ANDROCUR [Suspect]
     Active Substance: CYPROTERONE ACETATE
     Dosage: 1 DOSAGE FORM, DAILY
     Route: 048
     Dates: start: 20000916
  15. ANDROCUR [Suspect]
     Active Substance: CYPROTERONE ACETATE
     Dosage: ONE TABLET 7 DAYS A MONTH, THEN 1/2 TABLET 20 DAYS PER MONTH
     Route: 048
     Dates: start: 20040901
  16. ANDROCUR [Suspect]
     Active Substance: CYPROTERONE ACETATE
     Dosage: 1/2 TABLET 7 DAYS A MONTH, THEN ONE TABLET 7 DAYS A MONTH, THEN 1/2 TABLET 20 DAYS A MONTH
     Route: 048
     Dates: start: 200507, end: 201506
  17. ANDROCUR [Suspect]
     Active Substance: CYPROTERONE ACETATE
     Dosage: 1 DOSAGE FORM, 6 DAYS A MONTH
     Route: 048
  18. CYPROTERONE [Interacting]
     Active Substance: CYPROTERONE
     Dosage: ONE TABLET 7 DAYS A MONTH; THEN 1/2 TABLET 20 DAYS PER MONTH (CYPROTERONE ACETATE ARROW)
     Route: 048
     Dates: start: 20120102, end: 20120326
  19. CYPROTERONE [Interacting]
     Active Substance: CYPROTERONE
     Dosage: ONE TABLET 7 DAYS A MONTH; THEN 1/2 TABLET 20 DAYS PER MONTH
     Route: 048
     Dates: start: 20130111, end: 20130503
  20. LUTESTRAL [Concomitant]
     Indication: PRODUCT USED FOR UNKNOWN INDICATION
     Dosage: UNK
     Route: 065
     Dates: start: 19961005
  21. TRINORDIOL [Concomitant]
     Active Substance: ETHINYL ESTRADIOL\LEVONORGESTREL
     Dosage: UNK
     Dates: start: 19990723
  22. CYPROTERONE ACETATE [Suspect]
     Active Substance: CYPROTERONE ACETATE
     Dosage: ONE TABLET 7 DAYS A MONTH; THEN 1/2 TABLET 20 DAYS PER MONTH
     Route: 048
     Dates: start: 20100914
  23. CYPROTERONE?TEVA [Interacting]
     Active Substance: CYPROTERONE ACETATE
     Dosage: ONE TABLET 7 DAYS A MONTH; THEN 1/2 TABLET 20 DAYS PER MONTH
     Route: 048
     Dates: start: 20110404
  24. CYPROTERONE [Suspect]
     Active Substance: CYPROTERONE
     Dosage: ONE TABLET 7 DAYS A MONTH; THEN 1/2 TABLET 20 DAYS PER MONTH
     Route: 048
     Dates: start: 20120326
  25. CYPROTERONE [Suspect]
     Active Substance: CYPROTERONE
     Dosage: ONE TABLET 7 DAYS A MONTH; THEN 1/2 TABLET 20 DAYS PER MONTH
     Route: 048
     Dates: start: 20121016
  26. KEPPRA [Suspect]
     Active Substance: LEVETIRACETAM
     Indication: EPILEPSY
     Dosage: UNK
     Route: 048
     Dates: start: 201408, end: 20141111
  27. CYPROTERONE ACETATE [Suspect]
     Active Substance: CYPROTERONE ACETATE
     Dosage: ONE TABLET 7 DAYS A MONTH; THEN 1/2 TABLET 20 DAYS PER MONTH
     Route: 048
     Dates: start: 20091105
  28. CYPROTERONE ACETATE [Suspect]
     Active Substance: CYPROTERONE ACETATE
     Dosage: ONE TABLET 7 DAYS A MONTH; THEN 1/2 TABLET 20 DAYS PER MONTH
     Route: 048
     Dates: start: 20100302
  29. CYPROTERONE BIOGARAN [Interacting]
     Active Substance: CYPROTERONE ACETATE
     Dosage: ONE TABLET 7 DAYS A MONTH: THEN Y, TABLET 20 DAYS PER MONTH
     Route: 048
     Dates: start: 20130926
  30. CYPROTERONE [Interacting]
     Active Substance: CYPROTERONE
     Dosage: ONE TABLET 7 DAYS A MONTH; THEN 1/2 TABLET 20 DAYS PER MONTH
     Route: 048
     Dates: start: 20110907, end: 20111125
  31. CYPROTERONE ACETATE [Suspect]
     Active Substance: CYPROTERONE ACETATE
     Dosage: ONE TABLET 7 DAYS A MONTH; THEN 1/2 TABLET 20 DAYS PER MONTH
     Route: 048
     Dates: start: 20091002
  32. CYPROTERONE ACETATE [Suspect]
     Active Substance: CYPROTERONE ACETATE
     Dosage: ONE TABLET 7 DAYS A MONTH; THEN 1/2 TABLET 20 DAYS PER MONTH
     Route: 048
     Dates: start: 20110728
  33. ACETATE DE CYPROTERONE EG [Interacting]
     Active Substance: CYPROTERONE ACETATE
     Dosage: ONE TABLET 7 DAYS A MONTH: THEN Y, TABLET 20 DAYS PER MONTH
     Route: 048
     Dates: start: 20140712
  34. CYPROTERONE BIOGARAN [Interacting]
     Active Substance: CYPROTERONE ACETATE
     Dosage: ONE TABLET 7 DAYS A MONTH: THEN Y, TABLET 20 DAYS PER MONTH
     Route: 048
     Dates: start: 20140122
  35. CYPROTERONE [Suspect]
     Active Substance: CYPROTERONE
     Indication: HYPERANDROGENISM
     Dosage: ONE TABLET 7 DAYS A MONTH: THEN Y, TABLET 20 DAYS PER MONTH
     Route: 048
     Dates: start: 2000, end: 20040901
  36. CYPROTERON MYLAN [Suspect]
     Active Substance: CYPROTERONE ACETATE
     Dosage: ONE TABLET 7 DAYS A MONTH; THEN 1/2 TABLET 20 DAYS PER MONTH
     Route: 048
     Dates: start: 20100701
  37. CYPROTERON MYLAN [Suspect]
     Active Substance: CYPROTERONE ACETATE
     Dosage: ONE TABLET 7 DAYS A MONTH; THEN 1/2 TABLET 20 DAYS PER MONTH
     Route: 048
     Dates: start: 20140603
  38. ANDROCUR [Suspect]
     Active Substance: CYPROTERONE ACETATE
     Indication: HYPERANDROGENISM
     Dosage: ONE TABLET 7 DAYS A MONTH, THEN 1/2 TABLET 20 DAYS PER MONTH
     Route: 048
     Dates: start: 199806, end: 20040901
  39. ANDROCUR [Suspect]
     Active Substance: CYPROTERONE ACETATE
     Dosage: .5 DOSAGE FORM, 21 OR 28 DAYS A MONTH
     Route: 048
  40. ANDROCUR [Suspect]
     Active Substance: CYPROTERONE ACETATE
     Dosage: 1 DOSAGE FORM, 10 DAYS A MONTH
     Route: 048
  41. CYPROTERONE SANDOZ [Interacting]
     Active Substance: CYPROTERONE ACETATE
     Indication: HYPERANDROGENISM
     Dosage: ONE TABLET 7 DAYS A MONTH; THEN 1/2 TABLET 20 DAYS PER MONTH
     Route: 048
     Dates: start: 20110616
  42. CYPROTERONE [Interacting]
     Active Substance: CYPROTERONE
     Indication: HYPERANDROGENISM
     Dosage: ONE TABLET 7 DAYS A MONTH; THEN 1/2 TABLET 20 DAYS PER MONTH (CYPROTERONE ACETATE ARROW)
     Route: 048
     Dates: start: 20100409, end: 20100701
  43. CYPROTERONE ACETATE [Suspect]
     Active Substance: CYPROTERONE ACETATE
     Dosage: ONE TABLET 7 DAYS A MONTH; THEN 1/2 TABLET 20 DAYS PER MONTH
     Route: 048
     Dates: start: 20091218
  44. CYPROTERONE BIOGARAN [Interacting]
     Active Substance: CYPROTERONE ACETATE
     Dosage: ONE TABLET 7 DAYS A MONTH: THEN Y, TABLET 20 DAYS PER MONTH
     Route: 048
     Dates: start: 20130612
  45. CYPROTERONE BIOGARAN [Interacting]
     Active Substance: CYPROTERONE ACETATE
     Dosage: ONE TABLET 7 DAYS A MONTH: THEN Y, TABLET 20 DAYS PER MONTH
     Route: 048
     Dates: start: 20130827
  46. CYPROTERONE [Suspect]
     Active Substance: CYPROTERONE
     Dosage: ONE TABLET 7 DAYS A MONTH: THEN Y, TABLET 20 DAYS PER MONTH
     Route: 048
     Dates: start: 200507, end: 201506
  47. CYPROTERON MYLAN [Suspect]
     Active Substance: CYPROTERONE ACETATE
     Dosage: ONE TABLET 7 DAYS A MONTH; THEN 1/2 TABLET 20 DAYS PER MONTH
     Route: 048
     Dates: start: 20091218
  48. OROMONE [Concomitant]
     Active Substance: ESTRADIOL
     Indication: PRODUCT USED FOR UNKNOWN INDICATION
     Dosage: ONE TABLET 20 DAYS PER MONTH
     Route: 065
     Dates: start: 200507, end: 20120827
  49. CYCLEANE [Concomitant]
     Active Substance: DESOGESTREL\ETHINYL ESTRADIOL
     Indication: PRODUCT USED FOR UNKNOWN INDICATION
     Dosage: UNK
     Dates: start: 200007, end: 200408
  50. TRINORDIOL [Concomitant]
     Active Substance: ETHINYL ESTRADIOL\LEVONORGESTREL
     Indication: PRODUCT USED FOR UNKNOWN INDICATION
     Dosage: UNK
     Dates: start: 19980217, end: 202007
  51. ALMOGRAN [Concomitant]
     Active Substance: ALMOTRIPTAN MALATE
     Indication: MIGRAINE
     Dosage: 12 DOSAGE FORM, PER MONTH
  52. ZOMIG [Concomitant]
     Active Substance: ZOLMITRIPTAN
     Indication: MIGRAINE
  53. CYPROTERONE ACETATE [Suspect]
     Active Substance: CYPROTERONE ACETATE
     Dosage: ONE TABLET 7 DAYS A MONTH; THEN 1/2 TABLET 20 DAYS PER MONTH
     Route: 048
     Dates: start: 20140603
  54. CYPROTERONE [Suspect]
     Active Substance: CYPROTERONE
     Dosage: ONE TABLET 7 DAYS A MONTH; THEN 1/2 TABLET 20 DAYS PER MONTH
     Route: 048
     Dates: start: 20120720
  55. CYPROTERON MYLAN [Suspect]
     Active Substance: CYPROTERONE ACETATE
     Indication: HYPERANDROGENISM
     Dosage: ONE TABLET 7 DAYS A MONTH: THEN Y, TABLET 20 DAYS PER MONTH
     Route: 048
     Dates: start: 20090615
  56. CYPROTERON MYLAN [Suspect]
     Active Substance: CYPROTERONE ACETATE
     Dosage: ONE TABLET 7 DAYS A MONTH; THEN 1/2 TABLET 20 DAYS PER MONTH
     Route: 048
     Dates: start: 20091002
  57. CYPROTERON MYLAN [Suspect]
     Active Substance: CYPROTERONE ACETATE
     Dosage: ONE TABLET 7 DAYS A MONTH; THEN 1/2 TABLET 20 DAYS PER MONTH
     Route: 048
     Dates: start: 20101019

REACTIONS (2)
  - Drug interaction [Unknown]
  - Intracranial tumour haemorrhage [Recovered/Resolved]
